FAERS Safety Report 8848642 (Version 1)
Quarter: 2012Q4

REPORT INFORMATION
  Report Type: 
  Country: US (occurrence: US)
  Receive Date: 20121018
  Receipt Date: 20121018
  Transmission Date: 20130627
  Serious: Yes (Death)
  Sender: FDA-Public Use
  Company Number: US-PFIZER INC-2012257761

PATIENT
  Age: 70 Year
  Sex: Female

DRUGS (1)
  1. SUTENT [Suspect]
     Indication: RENAL CANCER
     Dosage: 50 mg, UNK
     Dates: start: 20120910, end: 20120910

REACTIONS (2)
  - Second primary malignancy [Fatal]
  - Lung neoplasm malignant [Fatal]
